FAERS Safety Report 16252071 (Version 2)
Quarter: 2025Q2

REPORT INFORMATION
  Report Type: Spontaneous
  Country: CA (occurrence: CA)
  Receive Date: 20190429
  Receipt Date: 20250409
  Transmission Date: 20250716
  Serious: Yes (Death, Other)
  Sender: GILEAD
  Company Number: CA-GLAXOSMITHKLINE-CA2019GSK076225

PATIENT
  Age: 63 Year
  Sex: Male

DRUGS (3)
  1. AMBRISENTAN [Suspect]
     Active Substance: AMBRISENTAN
     Indication: Pulmonary arterial hypertension
     Route: 065
  2. ADCIRCA [Suspect]
     Active Substance: TADALAFIL
     Indication: Pulmonary arterial hypertension
     Route: 065
  3. ADCIRCA [Suspect]
     Active Substance: TADALAFIL
     Route: 065

REACTIONS (6)
  - Death [Fatal]
  - Discomfort [Fatal]
  - Dizziness [Fatal]
  - Headache [Fatal]
  - Joint swelling [Fatal]
  - Off label use [Fatal]
